FAERS Safety Report 17855857 (Version 2)
Quarter: 2020Q2

REPORT INFORMATION
  Report Type: Report from Study
  Country: US (occurrence: US)
  Receive Date: 20200603
  Receipt Date: 20200617
  Transmission Date: 20200714
  Serious: Yes (Hospitalization)
  Sender: FDA-Public Use
  Company Number: US-ACTELION-A-NJ2019-199842

PATIENT
  Sex: Male
  Weight: 97.05 kg

DRUGS (9)
  1. UPTRAVI [Suspect]
     Active Substance: SELEXIPAG
     Dosage: 1400 MCG, BID
     Route: 048
  2. UPTRAVI [Suspect]
     Active Substance: SELEXIPAG
     Dosage: 1600 MCG, BID
     Route: 048
  3. TADALAFIL. [Concomitant]
     Active Substance: TADALAFIL
  4. AMBRISENTAN [Concomitant]
     Active Substance: AMBRISENTAN
  5. UPTRAVI [Suspect]
     Active Substance: SELEXIPAG
     Dosage: 1000 MCG, BID
     Route: 048
  6. UPTRAVI [Suspect]
     Active Substance: SELEXIPAG
     Dosage: 400 MCG, BID
     Route: 048
  7. UPTRAVI [Suspect]
     Active Substance: SELEXIPAG
     Indication: PULMONARY ARTERIAL HYPERTENSION
     Dosage: 800 MCG
     Route: 048
  8. UPTRAVI [Suspect]
     Active Substance: SELEXIPAG
     Dosage: 600 MCG, BID
     Route: 048
  9. UPTRAVI [Suspect]
     Active Substance: SELEXIPAG
     Dosage: 800 MCG, BID
     Route: 048
     Dates: end: 20200309

REACTIONS (16)
  - Fall [Unknown]
  - Diarrhoea [Recovered/Resolved]
  - Dysphagia [Unknown]
  - Headache [Not Recovered/Not Resolved]
  - Bruxism [Unknown]
  - Chest discomfort [Recovered/Resolved]
  - Memory impairment [Unknown]
  - Hospitalisation [Unknown]
  - Head injury [Unknown]
  - Joint stiffness [Recovered/Resolved]
  - Product dose omission [Recovered/Resolved]
  - Migraine [Unknown]
  - Haemorrhage [Unknown]
  - Dizziness [Recovered/Resolved]
  - Musculoskeletal stiffness [Unknown]
  - Unevaluable event [Unknown]
